FAERS Safety Report 24150447 (Version 1)
Quarter: 2024Q3

REPORT INFORMATION
  Report Type: Report from Study
  Country: CA (occurrence: CA)
  Receive Date: 20240730
  Receipt Date: 20240730
  Transmission Date: 20241017
  Serious: Yes (Hospitalization, Other)
  Sender: SANDOZ
  Company Number: CA-SANDOZ-SDZ2023CA052288

PATIENT
  Sex: Female

DRUGS (4)
  1. ERELZI [Suspect]
     Active Substance: ETANERCEPT-SZZS
     Indication: Rheumatoid arthritis
     Dosage: 50 MG
     Route: 058
     Dates: start: 20200413
  2. HYRIMOZ [Suspect]
     Active Substance: ADALIMUMAB-ADAZ
     Indication: Rheumatoid arthritis
     Dosage: 40 MG, QW
     Route: 058
     Dates: start: 20231117
  3. METHOTREXATE [Suspect]
     Active Substance: METHOTREXATE
     Indication: Product used for unknown indication
     Dosage: 1CC OF METHOTREXATE/WEEK
     Route: 065
  4. SULFASALAZINE [Suspect]
     Active Substance: SULFASALAZINE
     Indication: Product used for unknown indication
     Dosage: 4 DF, QD
     Route: 065

REACTIONS (7)
  - Deep vein thrombosis [Unknown]
  - Injection site pain [Unknown]
  - Therapeutic product effect decreased [Unknown]
  - Off label use [Unknown]
  - Joint swelling [Unknown]
  - Movement disorder [Unknown]
  - Peripheral swelling [Unknown]
